FAERS Safety Report 4891864-6 (Version None)
Quarter: 2006Q1

REPORT INFORMATION
  Report Type: 
  Country: None (occurrence: None)
  Receive Date: 20060124
  Receipt Date: 20060124
  Transmission Date: 20060701
  Serious: Yes (Other)
  Sender: FDA-Public Use
  Company Number: None

PATIENT
  Sex: Male
  Weight: 97 kg

DRUGS (3)
  1. CARBOPLATIN [Suspect]
     Indication: NON-SMALL CELL LUNG CANCER
     Dosage: SEE IMAGE
     Route: 042
     Dates: start: 20051205, end: 20060116
  2. CARBOPLATIN [Suspect]
     Indication: NON-SMALL CELL LUNG CANCER
     Dosage: SEE IMAGE
     Route: 042
     Dates: start: 20060109
  3. PACLITAXEL [Suspect]
     Dosage: SEE IMAGE
     Route: 042
     Dates: start: 20060109

REACTIONS (1)
  - NEUTROPHIL COUNT DECREASED [None]
